FAERS Safety Report 7540184-X (Version None)
Quarter: 2011Q2

REPORT INFORMATION
  Report Type: 
  Country: None (occurrence: None)
  Receive Date: 20110610
  Receipt Date: 20110531
  Transmission Date: 20111010
  Serious: Yes (Other)
  Sender: FDA-Public Use
  Company Number: US-JNJFOC-20110602701

PATIENT
  Age: 14 Month
  Sex: Male
  Weight: 9.53 kg

DRUGS (3)
  1. EXTRA STRENGTH TYLENOL [Suspect]
     Route: 048
  2. EXTRA STRENGTH TYLENOL [Suspect]
     Indication: ACCIDENTAL EXPOSURE
     Route: 048
     Dates: start: 20110530, end: 20110530
  3. ALBUTEROL SULFATE AUTOHALER [Concomitant]
     Indication: RESPIRATORY DISTRESS
     Dosage: 1-2 TIMES

REACTIONS (4)
  - ACCIDENTAL DRUG INTAKE BY CHILD [None]
  - DIARRHOEA [None]
  - ACCIDENTAL OVERDOSE [None]
  - IRRITABILITY [None]
